FAERS Safety Report 7830222-9 (Version None)
Quarter: 2011Q4

REPORT INFORMATION
  Report Type: 
  Country: None (occurrence: None)
  Receive Date: 20111021
  Receipt Date: 20111018
  Transmission Date: 20120403
  Serious: Yes (Death)
  Sender: FDA-Public Use
  Company Number: PHEH2011US07094

PATIENT
  Sex: Male

DRUGS (15)
  1. VITAMIN B-12 [Concomitant]
     Dosage: 1000 UG, UNK
     Route: 048
     Dates: start: 20110221
  2. DIOVAN [Concomitant]
     Dosage: 320 MG, UNK
     Route: 048
     Dates: start: 20110221
  3. VITAMIN D [Concomitant]
     Dosage: 2000 U, UNK
     Route: 048
     Dates: start: 20110506
  4. GINKGO [Concomitant]
     Dosage: 60 MG, UNK
     Route: 048
     Dates: start: 20110506
  5. ATENOLOL [Concomitant]
     Dosage: 50 MG, UNK
     Route: 048
     Dates: start: 20110221
  6. HYDROCHLOROTHIAZIDE [Concomitant]
     Dosage: 25 MG, UNK
     Route: 048
     Dates: start: 20101213
  7. COQ10 [Concomitant]
     Dosage: 100 MG, UNK
     Route: 048
     Dates: start: 20101213
  8. LOVAZA [Concomitant]
     Dosage: 400 MG, UNK
     Route: 048
     Dates: start: 20110506
  9. EXJADE [Suspect]
     Indication: MYELODYSPLASTIC SYNDROME
     Dosage: 1625 MG, DAILY
     Route: 048
     Dates: start: 20101210
  10. DOXAZOSIN MESYLATE [Concomitant]
     Dosage: 4 MG, UNK
     Dates: start: 20110221
  11. MULTI-VITAMIN [Concomitant]
     Route: 048
     Dates: start: 20110221
  12. LEVOTHYROXINE SODIUM [Concomitant]
     Dosage: 50 UG, UNK
     Route: 048
     Dates: start: 20110917
  13. DICLOFENAC [Concomitant]
     Dosage: 75 MG, UNK
     Route: 048
     Dates: start: 20110506
  14. VITAMIN D [Concomitant]
     Dosage: 1000 MG, UNK
     Route: 048
     Dates: start: 20110221
  15. EXJADE [Suspect]
     Dosage: 1625 MG, DAILY
     Route: 048
     Dates: start: 20110531

REACTIONS (1)
  - CEREBROVASCULAR ACCIDENT [None]
